FAERS Safety Report 11596269 (Version 1)
Quarter: 2015Q4

REPORT INFORMATION
  Report Type: Spontaneous
  Country: MX (occurrence: None)
  Receive Date: 20151005
  Receipt Date: 20151005
  Transmission Date: 20160304
  Serious: Yes (Other)
  Sender: FDA-Public Use
  Company Number: None

PATIENT
  Age: 84 Year
  Sex: Male
  Weight: 74 kg

DRUGS (3)
  1. UROTROL 2 MGS SIEGFRED1 [Suspect]
     Active Substance: TOLTERODINE TARTRATE
     Indication: BENIGN PROSTATIC HYPERPLASIA
     Route: 048
  2. GLARGINE INSULINE [Concomitant]
  3. ROSUVASTATINEC [Concomitant]

REACTIONS (1)
  - Bladder spasm [None]

NARRATIVE: CASE EVENT DATE: 20151004
